FAERS Safety Report 5611749-7 (Version None)
Quarter: 2008Q1

REPORT INFORMATION
  Report Type: 
  Country: None (occurrence: None)
  Receive Date: 20080204
  Receipt Date: 20080123
  Transmission Date: 20080703
  Serious: Yes (Other)
  Sender: FDA-Public Use
  Company Number: BR-BAYER-200810855LA

PATIENT
  Age: 29 Year
  Sex: Female
  Weight: 65 kg

DRUGS (4)
  1. MIRENA [Suspect]
     Indication: PREMENSTRUAL SYNDROME
     Route: 015
     Dates: start: 20071101
  2. MIRENA [Suspect]
     Route: 015
     Dates: start: 20020903, end: 20070716
  3. LEXAPRO [Concomitant]
     Indication: GENERALISED ANXIETY DISORDER
     Route: 048
     Dates: start: 20070701
  4. PLENTY [Concomitant]
     Indication: WEIGHT INCREASED
     Route: 048
     Dates: start: 20040101, end: 20071101

REACTIONS (11)
  - FEMUR FRACTURE [None]
  - HYPOMENORRHOEA [None]
  - IUCD COMPLICATION [None]
  - MENSTRUATION DELAYED [None]
  - OSTEONECROSIS [None]
  - PENILE HAEMORRHAGE [None]
  - PENIS DISORDER [None]
  - PRE-EXISTING CONDITION IMPROVED [None]
  - PROCEDURAL PAIN [None]
  - ROAD TRAFFIC ACCIDENT [None]
  - WEIGHT INCREASED [None]
